FAERS Safety Report 19427602 (Version 1)
Quarter: 2021Q2

REPORT INFORMATION
  Report Type: Spontaneous
  Country: US (occurrence: US)
  Receive Date: 20210616
  Receipt Date: 20210616
  Transmission Date: 20210717
  Serious: Yes (Death)
  Sender: FDA-Public Use
  Company Number: None

PATIENT
  Age: 61 Year
  Sex: Female

DRUGS (11)
  1. VEMLIDY [Suspect]
     Active Substance: TENOFOVIR ALAFENAMIDE FUMARATE
     Indication: HEPATITIS B
     Route: 048
     Dates: start: 20210516
  2. ALLOPURINOL. [Suspect]
     Active Substance: ALLOPURINOL
  3. OMEPRAZOLE. [Suspect]
     Active Substance: OMEPRAZOLE
  4. LACTULOSE. [Suspect]
     Active Substance: LACTULOSE
  5. CHOLESTYRAM [Suspect]
     Active Substance: CHOLESTYRAMINE
  6. URSODIOL. [Suspect]
     Active Substance: URSODIOL
  7. SPIRONOLACT [Suspect]
     Active Substance: SPIRONOLACTONE
  8. TRAZODONE [Suspect]
     Active Substance: TRAZODONE HYDROCHLORIDE
  9. XIFAXAN [Suspect]
     Active Substance: RIFAXIMIN
  10. FUROSEMIDE. [Suspect]
     Active Substance: FUROSEMIDE
  11. NOVOLIN NOS [Suspect]
     Active Substance: INSULIN HUMAN

REACTIONS (1)
  - Death [None]

NARRATIVE: CASE EVENT DATE: 20210523
